FAERS Safety Report 11465594 (Version 1)
Quarter: 2015Q3

REPORT INFORMATION
  Report Type: Spontaneous
  Country: FR (occurrence: FR)
  Receive Date: 20150907
  Receipt Date: 20150907
  Transmission Date: 20151125
  Serious: Yes (Life-Threatening, Hospitalization)
  Sender: FDA-Public Use
  Company Number: FR-PFIZER INC-2015284414

PATIENT
  Age: 7 Year
  Sex: Male
  Weight: 21 kg

DRUGS (3)
  1. CHILDRENS ADVIL [Suspect]
     Active Substance: IBUPROFEN
     Indication: OROPHARYNGEAL PAIN
  2. CHILDRENS ADVIL [Suspect]
     Active Substance: IBUPROFEN
     Indication: TONSILLITIS STREPTOCOCCAL
  3. CHILDRENS ADVIL [Suspect]
     Active Substance: IBUPROFEN
     Indication: PYREXIA
     Dosage: 1 DF, 2X/DAY
     Route: 048
     Dates: start: 20150711, end: 20150715

REACTIONS (12)
  - Pericardial effusion [Recovering/Resolving]
  - Septic shock [Recovered/Resolved]
  - Rash [Unknown]
  - Pleural effusion [Unknown]
  - Hepatic failure [Recovered/Resolved]
  - Thrombocytopenia [Recovered/Resolved]
  - Lymphopenia [Unknown]
  - Cholestatic liver injury [Unknown]
  - Prerenal failure [Recovered/Resolved]
  - Condition aggravated [Recovered/Resolved]
  - Cell death [Unknown]
  - Skin exfoliation [Unknown]

NARRATIVE: CASE EVENT DATE: 20150716
